FAERS Safety Report 20306419 (Version 1)
Quarter: 2022Q1

REPORT INFORMATION
  Report Type: Spontaneous
  Country: US (occurrence: US)
  Receive Date: 20220106
  Receipt Date: 20220106
  Transmission Date: 20220424
  Serious: No
  Sender: FDA-Public Use
  Company Number: US-PARI RESPIRATORY EQUIPMENT, INC.-2021PAR00004

PATIENT
  Sex: Male

DRUGS (8)
  1. KITABIS PAK [Suspect]
     Active Substance: TOBRAMYCIN
     Dosage: 300 MG VIA NEBULIZER, 2X/DAY FOR 28 DAYS ON AND 28 DAYS OFF
  2. PULMOZYME [Concomitant]
     Active Substance: DORNASE ALFA
  3. MULTIVITAMIN COMPLETE FORMULATION [Concomitant]
  4. RANITIDINE HYDROCHLORIDE [Concomitant]
     Active Substance: RANITIDINE HYDROCHLORIDE
  5. SODIUM CHLORIDE [Concomitant]
     Active Substance: SODIUM CHLORIDE
  6. VENTOLIN HFA [Concomitant]
     Active Substance: ALBUTEROL SULFATE
  7. VITAMIN D3 [Concomitant]
     Active Substance: CHOLECALCIFEROL
  8. AMOXICILLIN\CLAVULANIC ACID [Concomitant]
     Active Substance: AMOXICILLIN\CLAVULANIC ACID

REACTIONS (3)
  - Wound [Unknown]
  - Off label use [Unknown]
  - Head injury [Unknown]
